FAERS Safety Report 7107972-5 (Version None)
Quarter: 2010Q4

REPORT INFORMATION
  Report Type: 
  Country: None (occurrence: None)
  Receive Date: 20101105
  Receipt Date: 20101005
  Transmission Date: 20110411
  Serious: Yes (Other)
  Sender: FDA-Public Use
  Company Number: 2010SP054243

PATIENT
  Sex: Female
  Weight: 53.5244 kg

DRUGS (1)
  1. IMPLANON [Suspect]
     Indication: PRODUCT USED FOR UNKNOWN INDICATION
     Dates: start: 20091201, end: 20101005

REACTIONS (2)
  - BIPOLAR DISORDER [None]
  - CONDITION AGGRAVATED [None]
